FAERS Safety Report 8558289 (Version 5)
Quarter: 2014Q1

REPORT INFORMATION
  Report Type: Spontaneous
  Country: US (occurrence: US)
  Receive Date: 20120511
  Receipt Date: 20140113
  Transmission Date: 20141002
  Serious: Yes (Hospitalization)
  Sender: FDA-Public Use
  Company Number: US-GLAXOSMITHKLINE-A0956331A

PATIENT
  Age: 56 Year
  Sex: Female
  Weight: 77 kg

DRUGS (9)
  1. TYKERB [Suspect]
     Indication: METASTASES TO PLEURA
     Dosage: 1000MG PER DAY
     Route: 048
     Dates: start: 20110816, end: 20131227
  2. XELODA [Concomitant]
  3. XANAX [Concomitant]
  4. KCL [Concomitant]
  5. TEMAZEPAM [Concomitant]
  6. DILTIAZEM [Concomitant]
  7. LETROZOLE [Concomitant]
  8. IMODIUM [Concomitant]
  9. ZOFRAN [Concomitant]

REACTIONS (14)
  - Metastatic neoplasm [Unknown]
  - Colon neoplasm [Unknown]
  - Spondylolisthesis [Unknown]
  - Cerebral ischaemia [Unknown]
  - Pneumonia [Unknown]
  - Diarrhoea [Unknown]
  - Vitreous floaters [Unknown]
  - Rash vesicular [Not Recovered/Not Resolved]
  - Chest discomfort [Recovering/Resolving]
  - Osteoarthritis [Unknown]
  - Enthesopathy [Unknown]
  - Hepatic cyst [Unknown]
  - Constipation [Unknown]
  - Adverse event [Unknown]
